FAERS Safety Report 7004269-9 (Version None)
Quarter: 2010Q3

REPORT INFORMATION
  Report Type: 
  Country: None (occurrence: None)
  Receive Date: 20100921
  Receipt Date: 20100906
  Transmission Date: 20110219
  Serious: Yes (Other)
  Sender: FDA-Public Use
  Company Number: SE-RANBAXY-2010RR-38136

PATIENT
  Age: 59 Year
  Sex: Female

DRUGS (4)
  1. FLUCONAZOLE [Suspect]
     Indication: ORAL CANDIDIASIS
     Dosage: 50 MG, UNK
     Dates: start: 20000101
  2. FLUCONAZOLE [Suspect]
     Indication: CANDIDIASIS
     Dosage: 400 MG, UNK
  3. PHENYTOIN SODIUM [Suspect]
     Indication: EPILEPSY
     Dosage: 700 MG, UNK
  4. PHENYTOIN SODIUM [Suspect]
     Dosage: 600 MG, UNK

REACTIONS (5)
  - ALTERED STATE OF CONSCIOUSNESS [None]
  - ATAXIA [None]
  - CONFUSIONAL STATE [None]
  - DRUG INTERACTION [None]
  - VERTIGO [None]
